FAERS Safety Report 19821569 (Version 1)
Quarter: 2021Q3

REPORT INFORMATION
  Report Type: Spontaneous
  Country: PE (occurrence: PE)
  Receive Date: 20210913
  Receipt Date: 20210913
  Transmission Date: 20211014
  Serious: Yes (Other)
  Sender: FDA-Public Use
  Company Number: PE-TEVA-2021-PE-1952640

PATIENT
  Age: 1 Decade

DRUGS (1)
  1. MEPRECORT [Suspect]
     Active Substance: PREDNISOLONE
     Route: 065
     Dates: start: 20210903

REACTIONS (2)
  - Product quality issue [Unknown]
  - Haemorrhage [Unknown]

NARRATIVE: CASE EVENT DATE: 20210903
